FAERS Safety Report 16949979 (Version 6)
Quarter: 2020Q3

REPORT INFORMATION
  Report Type: Spontaneous
  Country: US (occurrence: US)
  Receive Date: 20191023
  Receipt Date: 20200717
  Transmission Date: 20201102
  Serious: Yes (Hospitalization, Other)
  Sender: FDA-Public Use
  Company Number: US-SHIRE-US201933976

PATIENT
  Age: 55 Year
  Sex: Female

DRUGS (2)
  1. MAGNESIUM [Concomitant]
     Active Substance: MAGNESIUM
     Indication: PRODUCT USED FOR UNKNOWN INDICATION
     Route: 065
  2. NATPARA (PARATHYROID HORMONE) [Suspect]
     Active Substance: PARATHYROID HORMONE
     Indication: HYPOPARATHYROIDISM
     Dosage: 100 MICROGRAM, 1X/DAY:QD
     Route: 058
     Dates: start: 20170501

REACTIONS (8)
  - Hypoventilation [Recovered/Resolved]
  - Blood calcium abnormal [Unknown]
  - Product administration error [Unknown]
  - Blood calcium decreased [Recovering/Resolving]
  - Inappropriate schedule of product administration [Unknown]
  - Dyspnoea [Unknown]
  - Asthenia [Unknown]
  - Recalled product [Unknown]

NARRATIVE: CASE EVENT DATE: 20200709
